FAERS Safety Report 16394246 (Version 1)
Quarter: 2019Q2

REPORT INFORMATION
  Report Type: Spontaneous
  Country: AU (occurrence: AU)
  Receive Date: 20190605
  Receipt Date: 20190605
  Transmission Date: 20190711
  Serious: Yes (Hospitalization)
  Sender: FDA-Public Use
  Company Number: AU-MYLANLABS-2019M1052730

PATIENT
  Age: 30 Year
  Sex: Female

DRUGS (5)
  1. OXYTOCIN. [Suspect]
     Active Substance: OXYTOCIN
     Indication: PROLONGED LABOUR
     Dosage: 30 UNITS; AT A RATE OF INFUSION OF 1MILLIUNIT/MINUTE OR 1ML/HOUR. TITRATION WAS INCREASED EVERY 3...
     Route: 050
  2. ENTONOX [Suspect]
     Active Substance: NITROUS OXIDE\OXYGEN
     Indication: ANALGESIC THERAPY
     Dosage: NITROUS OXIDE/OXYGEN (50:50)
     Route: 065
  3. SODIUM CHLORIDE. [Suspect]
     Active Substance: SODIUM CHLORIDE
     Indication: PRODUCT USED FOR UNKNOWN INDICATION
     Route: 050
  4. ROPIVACAINE. [Suspect]
     Active Substance: ROPIVACAINE HYDROCHLORIDE
     Indication: EPIDURAL ANAESTHESIA
     Route: 008
  5. FENTANYL. [Suspect]
     Active Substance: FENTANYL
     Indication: EPIDURAL ANAESTHESIA
     Route: 008

REACTIONS (2)
  - Bradyarrhythmia [Recovered/Resolved]
  - Maternal exposure during delivery [Recovered/Resolved]
